FAERS Safety Report 6733289-4 (Version None)
Quarter: 2010Q2

REPORT INFORMATION
  Report Type: 
  Country: None (occurrence: None)
  Receive Date: 20100520
  Receipt Date: 20100506
  Transmission Date: 20101027
  Serious: Yes (Hospitalization)
  Sender: FDA-Public Use
  Company Number: US-JNJFOC-20100504617

PATIENT
  Age: 2 Year
  Sex: Male
  Weight: 10.89 kg

DRUGS (2)
  1. CHILDREN'S TYLENOL PLUS COUGH + RUNNY NOSE CHERRY [Suspect]
     Indication: NASOPHARYNGITIS
     Route: 048
  2. CHILDREN'S TYLENOL PLUS MULTI-SYMPTOM COLD DYE-FREE GRAPE [Suspect]
     Indication: DRUG USE FOR UNKNOWN INDICATION
     Route: 048

REACTIONS (2)
  - BACTERIAL INFECTION [None]
  - TRANSMISSION OF AN INFECTIOUS AGENT VIA A MEDICINAL PRODUCT [None]
